FAERS Safety Report 12424320 (Version 2)
Quarter: 2017Q2

REPORT INFORMATION
  Report Type: Spontaneous
  Country: US (occurrence: US)
  Receive Date: 20160601
  Receipt Date: 20170602
  Transmission Date: 20170830
  Serious: No
  Sender: FDA-Public Use
  Company Number: US-NOVEN PHARMACEUTICALS, INC.-US2015001251

PATIENT

DRUGS (5)
  1. DAYTRANA [Suspect]
     Active Substance: METHYLPHENIDATE
     Indication: ATTENTION DEFICIT/HYPERACTIVITY DISORDER
     Dosage: 30 MG, UNKNOWN
     Route: 062
     Dates: start: 2009
  2. DAYTRANA [Suspect]
     Active Substance: METHYLPHENIDATE
     Dosage: 10 MG, UNKNOWN
     Route: 062
     Dates: end: 2016
  3. DAYTRANA [Suspect]
     Active Substance: METHYLPHENIDATE
     Dosage: 30 MG, QOD
     Route: 062
     Dates: start: 201608, end: 2016
  4. DAYTRANA [Suspect]
     Active Substance: METHYLPHENIDATE
     Dosage: USING TWO, 15MG PATCHES TOGETHER, UNKNOWN
     Route: 062
  5. DAYTRANA [Suspect]
     Active Substance: METHYLPHENIDATE
     Dosage: 30 MG, UNKNOWN
     Route: 062
     Dates: start: 2016, end: 201608

REACTIONS (9)
  - Abnormal behaviour [Unknown]
  - Product adhesion issue [Recovered/Resolved]
  - Withdrawal syndrome [Unknown]
  - Disturbance in attention [Unknown]
  - Inappropriate affect [Unknown]
  - Drug dose omission [Not Recovered/Not Resolved]
  - Psychomotor hyperactivity [Unknown]
  - Wrong technique in product usage process [Recovered/Resolved]
  - Off label use [Unknown]

NARRATIVE: CASE EVENT DATE: 2009
